FAERS Safety Report 9847465 (Version 1)
Quarter: 2014Q1

REPORT INFORMATION
  Report Type: Spontaneous
  Country: US (occurrence: US)
  Receive Date: 20140127
  Receipt Date: 20140127
  Transmission Date: 20141002
  Serious: Yes (Other)
  Sender: FDA-Public Use
  Company Number: US-BRISTOL-MYERS SQUIBB COMPANY-20043444

PATIENT
  Sex: Female

DRUGS (3)
  1. COUMADIN [Suspect]
  2. WARFARIN SODIUM [Suspect]
  3. METRONIDAZOLE [Suspect]

REACTIONS (3)
  - Rectal haemorrhage [Unknown]
  - Diarrhoea haemorrhagic [Unknown]
  - Clostridium difficile infection [Unknown]
